FAERS Safety Report 9833814 (Version 1)
Quarter: 2014Q1

REPORT INFORMATION
  Report Type: Spontaneous
  Country: US (occurrence: US)
  Receive Date: 20140122
  Receipt Date: 20140122
  Transmission Date: 20141002
  Serious: No
  Sender: FDA-Public Use
  Company Number: US-BIOGENIDEC-2014BI004790

PATIENT
  Age: 33 Year
  Sex: Male

DRUGS (5)
  1. TECFIDERA [Suspect]
     Indication: MULTIPLE SCLEROSIS
     Dates: start: 20140110
  2. TECFIDERA [Suspect]
     Indication: MULTIPLE SCLEROSIS
     Route: 048
     Dates: start: 20140110
  3. NEURONTIN [Concomitant]
  4. DETROL LA [Concomitant]
  5. WELLBUTRIN [Concomitant]

REACTIONS (2)
  - Formication [Not Recovered/Not Resolved]
  - Pruritus [Unknown]
